FAERS Safety Report 24743955 (Version 4)
Quarter: 2025Q4

REPORT INFORMATION
  Report Type: Report from Study
  Country: CA (occurrence: CA)
  Receive Date: 20241217
  Receipt Date: 20251215
  Transmission Date: 20260118
  Serious: Yes (Hospitalization)
  Sender: CSL BEHRING
  Company Number: CA-BEH-2024177451

PATIENT
  Age: 48 Year
  Sex: Female
  Weight: 78.2 kg

DRUGS (5)
  1. HIZENTRA [Suspect]
     Active Substance: HUMAN IMMUNOGLOBULIN G
     Indication: Primary immunodeficiency syndrome
     Dosage: 7 G, QW
     Route: 065
     Dates: start: 20160101
  2. HIZENTRA [Suspect]
     Active Substance: HUMAN IMMUNOGLOBULIN G
     Indication: Hypogammaglobulinaemia
     Dosage: UNK UNK, QW
     Route: 065
     Dates: start: 20241130
  3. HIZENTRA [Suspect]
     Active Substance: HUMAN IMMUNOGLOBULIN G
     Dosage: 7 G, QW
     Route: 058
     Dates: start: 20160101
  4. CETIRIZINE [Concomitant]
     Active Substance: CETIRIZINE HYDROCHLORIDE
     Dosage: 20 MG, QD
     Route: 065
  5. SYMBICORT [Concomitant]
     Active Substance: BUDESONIDE\FORMOTEROL FUMARATE DIHYDRATE
     Dosage: UNK MCG/ML
     Route: 065

REACTIONS (13)
  - Hospitalisation [Unknown]
  - Hospitalisation [Unknown]
  - Injection site swelling [Unknown]
  - Localised infection [Unknown]
  - Dyspnoea [Unknown]
  - Wheezing [Unknown]
  - Cough [Unknown]
  - Ear infection [Recovered/Resolved]
  - Chest discomfort [Unknown]
  - Weight decreased [Unknown]
  - Infusion site swelling [Unknown]
  - Dyspnoea exertional [Unknown]
  - Dry eye [Unknown]

NARRATIVE: CASE EVENT DATE: 20241130
